FAERS Safety Report 9659464 (Version 1)
Quarter: 2013Q4

REPORT INFORMATION
  Report Type: Report from Study
  Country: MX (occurrence: MX)
  Receive Date: 20131031
  Receipt Date: 20131031
  Transmission Date: 20140711
  Serious: Yes (Death)
  Sender: FDA-Public Use
  Company Number: PHHY2013MX122996

PATIENT
  Sex: Female

DRUGS (1)
  1. CO-DIOVAN [Suspect]
     Dosage: 1 DF, DAILY (160 MG VALS/12.5 MG HCTZ)
     Route: 048
     Dates: start: 201101

REACTIONS (3)
  - Cardiac failure [Fatal]
  - Hernia [Fatal]
  - Blister [Fatal]
